FAERS Safety Report 8025859-0 (Version None)
Quarter: 2012Q1

REPORT INFORMATION
  Report Type: 
  Country: None (occurrence: None)
  Receive Date: 20120105
  Receipt Date: 20110401
  Transmission Date: 20120608
  Serious: No
  Sender: FDA-Public Use
  Company Number: US-ABBOTT-11P-163-0716728-00

PATIENT
  Sex: Female
  Weight: 72.186 kg

DRUGS (5)
  1. LEVOTHYROXINE SODIUM [Suspect]
     Indication: HYPOTHYROIDISM
     Route: 048
     Dates: start: 20100901, end: 20110201
  2. LEVOTHYROXINE SODIUM [Suspect]
     Dosage: SIX DAYS A WEEK
     Route: 048
     Dates: start: 20110201, end: 20110301
  3. FIBER [Concomitant]
     Indication: SUPPLEMENTATION THERAPY
  4. SYNTHROID [Suspect]
     Route: 048
     Dates: start: 20100801, end: 20100901
  5. SYNTHROID [Suspect]
     Indication: HYPOTHYROIDISM
     Dosage: SIX DAYS A WEEK
     Route: 048
     Dates: start: 20110301

REACTIONS (5)
  - GAIT DISTURBANCE [None]
  - WEIGHT INCREASED [None]
  - ARTHRALGIA [None]
  - INSOMNIA [None]
  - PALPITATIONS [None]
